FAERS Safety Report 15490551 (Version 2)
Quarter: 2018Q4

REPORT INFORMATION
  Report Type: Report from Study
  Country: None (occurrence: US)
  Receive Date: 20181011
  Receipt Date: 20181120
  Transmission Date: 20190205
  Serious: Yes (Hospitalization, Other)
  Sender: FDA-Public Use
  Company Number: US-ABBVIE-18K-163-2515475-00

PATIENT
  Age: 32 Year
  Sex: Female
  Weight: 77.18 kg

DRUGS (1)
  1. HUMIRA [Suspect]
     Active Substance: ADALIMUMAB
     Indication: CROHN^S DISEASE
     Route: 058
     Dates: start: 2018

REACTIONS (4)
  - Gastrointestinal pain [Unknown]
  - Intestinal haemorrhage [Unknown]
  - Anal fistula [Recovering/Resolving]
  - Faeces hard [Unknown]

NARRATIVE: CASE EVENT DATE: 2018
